FAERS Safety Report 9800237 (Version 5)
Quarter: 2014Q2

REPORT INFORMATION
  Report Type: Spontaneous
  Country: US (occurrence: US)
  Receive Date: 20140106
  Receipt Date: 20140423
  Transmission Date: 20141212
  Serious: Yes (Hospitalization)
  Sender: FDA-Public Use
  Company Number: US-GILEAD-2014-0091283

PATIENT
  Sex: Female

DRUGS (4)
  1. LETAIRIS [Suspect]
     Indication: PULMONARY HYPERTENSION
     Dosage: 10 MG, QD
     Route: 065
     Dates: start: 20130909
  2. LETAIRIS [Suspect]
     Indication: SLEEP APNOEA SYNDROME
  3. LETAIRIS [Suspect]
     Indication: PICKWICKIAN SYNDROME
  4. ADCIRCA [Concomitant]

REACTIONS (3)
  - Lung disorder [Unknown]
  - Respiratory disorder [Unknown]
  - Dyspnoea [Unknown]
